FAERS Safety Report 4350837-2 (Version None)
Quarter: 2004Q2

REPORT INFORMATION
  Report Type: 
  Country: None (occurrence: None)
  Receive Date: 20040428
  Receipt Date: 20040420
  Transmission Date: 20050107
  Serious: Yes (Hospitalization, Other)
  Sender: FDA-Public Use
  Company Number: 2004014069

PATIENT
  Sex: 0

DRUGS (1)
  1. TIKOSYN [Suspect]
     Indication: ILL-DEFINED DISORDER

REACTIONS (2)
  - BLOOD PRESSURE DECREASED [None]
  - TREATMENT NONCOMPLIANCE [None]
